FAERS Safety Report 8837378 (Version 6)
Quarter: 2013Q2

REPORT INFORMATION
  Report Type: Report from Study
  Country: FR (occurrence: FR)
  Receive Date: 20121012
  Receipt Date: 20130411
  Transmission Date: 20140414
  Serious: Yes (Death, Other)
  Sender: FDA-Public Use
  Company Number: FR-MILLENNIUM PHARMACEUTICALS, INC.-2012-06886

PATIENT
  Sex: 0

DRUGS (11)
  1. VELCADE [Suspect]
     Indication: MANTLE CELL LYMPHOMA
     Dosage: 2.13 MG, CYCLIC
     Route: 058
     Dates: start: 20120622, end: 20120831
  2. VELCADE [Suspect]
     Dosage: UNK
  3. LEVACT [Suspect]
     Indication: MANTLE CELL LYMPHOMA
     Dosage: 157.5 MG, CYCLIC
     Route: 042
     Dates: start: 20120622, end: 20120822
  4. DEXAMETHASONE [Suspect]
     Indication: MANTLE CELL LYMPHOMA
     Dosage: 40 MG, UNK
     Route: 042
     Dates: start: 20120623, end: 20120822
  5. MABTHERA [Suspect]
     Indication: MANTLE CELL LYMPHOMA
     Dosage: 650 MG, UNK
     Route: 042
     Dates: start: 20120622, end: 20120821
  6. VALACICLOVIR [Concomitant]
     Indication: PROPHYLAXIS
     Dosage: 1 G, UNK
     Route: 048
     Dates: start: 20120622
  7. EZETIMIBE W/SIMVASTATIN [Concomitant]
     Indication: PROPHYLAXIS
     Dosage: UNK
     Route: 048
     Dates: start: 20030911
  8. ZOPICLONE [Concomitant]
     Indication: INSOMNIA
     Dosage: 7.5 MG, UNK
     Route: 048
     Dates: start: 200309
  9. CLOPIDOGREL [Concomitant]
     Indication: PROPHYLAXIS
     Dosage: 75 MG, UNK
     Route: 048
     Dates: start: 20030911
  10. KARDEGIC                           /00002703/ [Concomitant]
     Indication: DEVICE OCCLUSION
     Dosage: 75 MG, UNK
     Route: 048
     Dates: start: 20030911
  11. BISOPROLOL [Concomitant]
     Indication: DEVICE OCCLUSION
     Dosage: 2.5 MG, UNK
     Route: 048
     Dates: start: 200303

REACTIONS (1)
  - Progressive multifocal leukoencephalopathy [Fatal]
